FAERS Safety Report 11169793 (Version 1)
Quarter: 2015Q2

REPORT INFORMATION
  Report Type: Spontaneous
  Country: US (occurrence: None)
  Receive Date: 20150604
  Receipt Date: 20150604
  Transmission Date: 20150821
  Serious: Yes (Hospitalization, Other)
  Sender: FDA-Public Use
  Company Number: A1073012A

PATIENT
  Age: 15 Year
  Sex: Male

DRUGS (2)
  1. TIVICAY [Suspect]
     Active Substance: DOLUTEGRAVIR SODIUM
     Indication: PRODUCT USED FOR UNKNOWN INDICATION
     Dates: start: 201405
  2. EPZICOM [Suspect]
     Active Substance: ABACAVIR SULFATE\LAMIVUDINE
     Indication: PRODUCT USED FOR UNKNOWN INDICATION
     Dates: start: 201405

REACTIONS (1)
  - Pancreatitis [None]
